FAERS Safety Report 7478527-8 (Version None)
Quarter: 2011Q2

REPORT INFORMATION
  Report Type: 
  Country: None (occurrence: None)
  Receive Date: 20110513
  Receipt Date: 20110505
  Transmission Date: 20111010
  Serious: Yes (Hospitalization)
  Sender: FDA-Public Use
  Company Number: FR-SANOFI-AVENTIS-2011SA028596

PATIENT
  Age: 86 Year
  Sex: Female

DRUGS (11)
  1. IMOVANE [Suspect]
     Route: 048
  2. DICLOFENAC SODIUM [Concomitant]
  3. LASIX [Suspect]
     Route: 048
  4. INDAPAMIDE [Suspect]
     Route: 048
     Dates: end: 20110406
  5. HALDOL [Suspect]
     Indication: DELIRIUM
     Dosage: DOSE:2 MILLIGRAM(S)/MILLILITRE
     Route: 048
     Dates: start: 20110301, end: 20110331
  6. CORDARONE [Concomitant]
     Route: 048
  7. ACETAMINOPHEN [Concomitant]
     Route: 048
  8. IMOVANE [Suspect]
     Route: 048
  9. BISOPROLOL FUMARATE [Suspect]
     Route: 048
  10. ASPIRIN [Concomitant]
     Route: 048
  11. OMEPRAZOLE [Concomitant]
     Route: 048
     Dates: start: 20080101, end: 20110401

REACTIONS (3)
  - URINARY TRACT INFECTION [None]
  - FALL [None]
  - DEHYDRATION [None]
